FAERS Safety Report 6704509-7 (Version None)
Quarter: 2010Q2

REPORT INFORMATION
  Report Type: 
  Country: None (occurrence: None)
  Receive Date: 20100430
  Receipt Date: 20100422
  Transmission Date: 20101027
  Serious: Yes (Hospitalization)
  Sender: FDA-Public Use
  Company Number: US-CEPHALON-US025029

PATIENT
  Sex: Male
  Weight: 79 kg

DRUGS (11)
  1. NUVIGIL [Suspect]
     Indication: SCHIZOPHRENIA
     Route: 048
     Dates: start: 20081030, end: 20081107
  2. TRIAMCINOLONE [Concomitant]
  3. INVEGA [Concomitant]
     Indication: SCHIZOPHRENIA
     Route: 048
     Dates: start: 20080403, end: 20081108
  4. INVEGA [Concomitant]
     Dates: start: 20081112
  5. VARENICLINE [Concomitant]
     Indication: EX-TOBACCO USER
     Route: 048
     Dates: start: 20080701
  6. BUDESONIDE WITH FORMOTEROL [Concomitant]
     Indication: ASTHMA
     Dates: start: 20080201
  7. ALBUTEROL [Concomitant]
     Indication: ASTHMA
     Dates: start: 19920101
  8. SYMBICORT [Concomitant]
     Indication: ASTHMA
     Dates: start: 20080201, end: 20081113
  9. COGENTIN [Concomitant]
  10. CHANTIX [Concomitant]
     Indication: SMOKING CESSATION THERAPY
     Dates: start: 20080701, end: 20081111
  11. ADVAIR DISKUS 100/50 [Concomitant]
     Indication: ASTHMA
     Dates: start: 20081112

REACTIONS (5)
  - DERMATITIS ALLERGIC [None]
  - ECZEMA [None]
  - PERIVASCULAR DERMATITIS [None]
  - PRURITUS [None]
  - SCHIZOPHRENIA [None]
